FAERS Safety Report 10668197 (Version 1)
Quarter: 2014Q4

REPORT INFORMATION
  Report Type: Spontaneous
  Country: FR (occurrence: FR)
  Receive Date: 20141222
  Receipt Date: 20141222
  Transmission Date: 20150529
  Serious: Yes (Hospitalization, Other)
  Sender: FDA-Public Use
  Company Number: FR-009507513-1412FRA009581

PATIENT
  Age: 46 Year
  Sex: Female
  Weight: 50 kg

DRUGS (3)
  1. STROMECTOL [Suspect]
     Active Substance: IVERMECTIN
     Dosage: 4 DF, THE SAME DAY
     Route: 048
     Dates: start: 20141212, end: 20141212
  2. STROMECTOL [Suspect]
     Active Substance: IVERMECTIN
     Dosage: 4 DF, ONCE
     Route: 048
     Dates: start: 20141127, end: 20141127
  3. STROMECTOL [Suspect]
     Active Substance: IVERMECTIN
     Indication: ACARODERMATITIS
     Dosage: 15 MG, ONCE
     Route: 048
     Dates: start: 20141116, end: 20141116

REACTIONS (8)
  - Contusion [Unknown]
  - Nervousness [Unknown]
  - Prescribed overdose [Unknown]
  - Panic reaction [Unknown]
  - Suicidal ideation [Unknown]
  - Skin disorder [Unknown]
  - Anxiety [Unknown]
  - Pruritus [Unknown]

NARRATIVE: CASE EVENT DATE: 2014
